FAERS Safety Report 21636774 (Version 1)
Quarter: 2022Q4

REPORT INFORMATION
  Report Type: Spontaneous
  Country: DE (occurrence: DE)
  Receive Date: 20221124
  Receipt Date: 20221124
  Transmission Date: 20230113
  Serious: No
  Sender: FDA-Public Use
  Company Number: DE-ALKEM LABORATORIES LIMITED-DE-ALKEM-2022-11400

PATIENT
  Age: 60 Year
  Sex: Male

DRUGS (16)
  1. EZETIMIBE [Suspect]
     Active Substance: EZETIMIBE
     Indication: Product used for unknown indication
     Dosage: UNK, QD,  EVERY 1 DAY
     Route: 065
  2. EZETIMIBE [Suspect]
     Active Substance: EZETIMIBE
     Dosage: UNK, QD,  EVERY 1 DAY
     Route: 065
     Dates: start: 20221007
  3. METFORMIN HYDROCHLORIDE [Suspect]
     Active Substance: METFORMIN HYDROCHLORIDE
     Indication: Product used for unknown indication
     Dosage: UNK, QD  EVERY 1 DAY
     Route: 065
  4. METFORMIN HYDROCHLORIDE [Suspect]
     Active Substance: METFORMIN HYDROCHLORIDE
     Dosage: UNK, QD  EVERY 1 DAY
     Route: 065
     Dates: start: 20221007
  5. ROSUVASTATIN [Suspect]
     Active Substance: ROSUVASTATIN
     Indication: Product used for unknown indication
     Dosage: UNK, QD EVERY 1 DAY
     Route: 065
     Dates: start: 20221007
  6. ROSUVASTATIN [Suspect]
     Active Substance: ROSUVASTATIN
     Dosage: UNK, QD EVERY 1 DAY
     Route: 065
  7. APIXABAN [Suspect]
     Active Substance: APIXABAN
     Indication: Product used for unknown indication
     Dosage: UNK, QD,  EVERY 1 DAY
     Route: 065
  8. APIXABAN [Suspect]
     Active Substance: APIXABAN
     Dosage: UNK, QD,  EVERY 1 DAY
     Route: 065
     Dates: start: 20221007
  9. BISOPROLOL [Suspect]
     Active Substance: BISOPROLOL
     Indication: Product used for unknown indication
     Dosage: UNK, QD EVERY 1 DAY
     Route: 065
     Dates: start: 20221007
  10. BISOPROLOL [Suspect]
     Active Substance: BISOPROLOL
     Dosage: UNK, QD EVERY 1 DAY
     Route: 065
  11. EMPAGLIFLOZIN [Suspect]
     Active Substance: EMPAGLIFLOZIN
     Indication: Product used for unknown indication
     Dosage: UNK, QD (EVERY 1 DAY)
     Route: 065
  12. EMPAGLIFLOZIN [Suspect]
     Active Substance: EMPAGLIFLOZIN
     Dosage: UNK, QD (EVERY 1 DAY)
     Route: 065
     Dates: start: 20221007
  13. ENTRESTO [Suspect]
     Active Substance: SACUBITRIL\VALSARTAN
     Indication: Cardiac failure
     Dosage: 200 MILLIGRAM, QD,  EVERY 1 DAY, FILM-COATED TABLE
     Route: 065
  14. ENTRESTO [Suspect]
     Active Substance: SACUBITRIL\VALSARTAN
     Dosage: 200 MILLIGRAM, QD,  EVERY 1 DAY, FILM-COATED TABLE
     Route: 065
     Dates: start: 20221007
  15. SPIRONOLACTONE [Suspect]
     Active Substance: SPIRONOLACTONE
     Indication: Product used for unknown indication
     Dosage: UNK, QD,  EVERY 1 DAY
     Route: 065
     Dates: start: 20221007
  16. SPIRONOLACTONE [Suspect]
     Active Substance: SPIRONOLACTONE
     Dosage: UNK, QD,  EVERY 1 DAY
     Route: 065

REACTIONS (1)
  - Blood potassium increased [Unknown]

NARRATIVE: CASE EVENT DATE: 20221005
